FAERS Safety Report 17650864 (Version 1)
Quarter: 2020Q2

REPORT INFORMATION
  Report Type: Report from Study
  Country: GB (occurrence: GB)
  Receive Date: 20200408
  Receipt Date: 20200408
  Transmission Date: 20200713
  Serious: Yes (Other)
  Sender: FDA-Public Use
  Company Number: NVSC2020GB095427

PATIENT
  Sex: Male

DRUGS (1)
  1. HYRIMOZ [Suspect]
     Active Substance: ADALIMUMAB-ADAZ
     Indication: PSORIASIS
     Dosage: (40 MG/0.8 ML)(EVERY OTHER WEEK)(AS DIRECTED)
     Route: 065
     Dates: start: 20200113

REACTIONS (3)
  - Haemarthrosis [Unknown]
  - Malaise [Unknown]
  - Psoriasis [Unknown]
